FAERS Safety Report 4697508-0 (Version None)
Quarter: 2005Q2

REPORT INFORMATION
  Report Type: 
  Country: None (occurrence: None)
  Receive Date: 20050621
  Receipt Date: 20050607
  Transmission Date: 20051028
  Serious: Yes (Other)
  Sender: FDA-Public Use
  Company Number: US_0504115312

PATIENT
  Age: 56 Year
  Sex: Male
  Weight: 80 kg

DRUGS (7)
  1. CIALIS [Suspect]
     Indication: ERECTILE DYSFUNCTION
     Dosage: 20 MG
     Dates: start: 20050301, end: 20050328
  2. CROMOLYN SODIUM [Concomitant]
  3. AMBIEN [Concomitant]
  4. ALBUTEROL [Concomitant]
  5. FLUNISOLIDE [Concomitant]
  6. BUPROPION HCL [Concomitant]
  7. ZAFIRLUKAST [Concomitant]

REACTIONS (15)
  - BLOOD GLUCOSE INCREASED [None]
  - EOSINOPHIL COUNT INCREASED [None]
  - EYE HAEMORRHAGE [None]
  - HIGH DENSITY LIPOPROTEIN DECREASED [None]
  - LOW DENSITY LIPOPROTEIN INCREASED [None]
  - MICTURITION URGENCY [None]
  - NOCTURIA [None]
  - OPTIC DISC DISORDER [None]
  - OPTIC ISCHAEMIC NEUROPATHY [None]
  - PALLOR [None]
  - PAPILLOEDEMA [None]
  - PUPILLARY REFLEX IMPAIRED [None]
  - SPLINTER HAEMORRHAGES [None]
  - URINARY HESITATION [None]
  - VISUAL FIELD DEFECT [None]
